FAERS Safety Report 10537697 (Version 1)
Quarter: 2014Q4

REPORT INFORMATION
  Report Type: Spontaneous
  Country: US (occurrence: None)
  Receive Date: 20141021
  Receipt Date: 20141021
  Transmission Date: 20150529
  Serious: Yes (Other)
  Sender: FDA-Public Use
  Company Number: 2014SCAL000161

PATIENT
  Age: 11 Year
  Sex: Male

DRUGS (1)
  1. LITHIUM CARBONATE (LITHIUM CARBONATE) UNKNOWN [Suspect]
     Active Substance: LITHIUM CARBONATE
     Indication: BIPOLAR DISORDER

REACTIONS (12)
  - Optic atrophy [None]
  - Papilloedema [None]
  - Benign intracranial hypertension [None]
  - Strabismus [None]
  - Nausea [None]
  - Tinnitus [None]
  - VIth nerve paresis [None]
  - Hyperaemia [None]
  - Blindness [None]
  - Vomiting [None]
  - Pupillary reflex impaired [None]
  - Headache [None]
